FAERS Safety Report 7170611-1 (Version None)
Quarter: 2010Q4

REPORT INFORMATION
  Report Type: 
  Country: None (occurrence: None)
  Receive Date: 20101217
  Receipt Date: 20101214
  Transmission Date: 20110411
  Serious: Yes (Hospitalization)
  Sender: FDA-Public Use
  Company Number: A0885882A

PATIENT
  Sex: Female

DRUGS (1)
  1. ADVAIR [Suspect]
     Route: 055

REACTIONS (1)
  - ADVERSE EVENT [None]
